FAERS Safety Report 10098015 (Version 1)
Quarter: 2014Q2

REPORT INFORMATION
  Report Type: Spontaneous
  Country: US (occurrence: None)
  Receive Date: 20140421
  Receipt Date: 20140421
  Transmission Date: 20141212
  Serious: Yes (Death, Hospitalization)
  Sender: FDA-Public Use
  Company Number: B0986261A

PATIENT
  Age: 43 Year
  Sex: Female

DRUGS (4)
  1. FLUTICASONE PROPIONATE + SALMETEROL XINAFOATE UNSPECIFIED (FLUTICASONE+SALMETEROL) [Suspect]
     Indication: ASTHMA
     Route: 055
  2. PREDNISONE (FORMULATION UNKNOWN) [Suspect]
     Indication: ASTHMA
  3. IPRATROPIUM BROMIDE [Concomitant]
  4. SALBUTAMOL SULPHATE [Concomitant]

REACTIONS (3)
  - Pulmonary mycosis [None]
  - Acute respiratory distress syndrome [None]
  - Blastomycosis [None]
